FAERS Safety Report 9671818 (Version 1)
Quarter: 2013Q4

REPORT INFORMATION
  Report Type: Spontaneous
  Country: US (occurrence: US)
  Receive Date: 20131106
  Receipt Date: 20131106
  Transmission Date: 20140711
  Serious: Yes (Life-Threatening, Hospitalization)
  Sender: FDA-Public Use
  Company Number: PHHY2013US122539

PATIENT
  Age: 26 Year
  Sex: Male

DRUGS (1)
  1. METHADONE [Suspect]

REACTIONS (6)
  - Posterior reversible encephalopathy syndrome [Unknown]
  - Mental status changes [Unknown]
  - Convulsion [Unknown]
  - Brain herniation [Unknown]
  - Brain stem haemorrhage [Unknown]
  - Overdose [Unknown]
